FAERS Safety Report 10072360 (Version 4)
Quarter: 2015Q2

REPORT INFORMATION
  Report Type: Spontaneous
  Country: US (occurrence: US)
  Receive Date: 20140411
  Receipt Date: 20150525
  Transmission Date: 20150821
  Serious: Yes (Death, Hospitalization, Other)
  Sender: FDA-Public Use
  Company Number: US-AMGEN-USASP2014024645

PATIENT
  Age: 32 Year
  Sex: Male

DRUGS (4)
  1. NPLATE [Suspect]
     Active Substance: ROMIPLOSTIM
     Indication: IMMUNE THROMBOCYTOPENIC PURPURA
     Dosage: 3 MUG/KG, QWK
     Route: 065
  2. ZIDOVUDINE. [Concomitant]
     Active Substance: ZIDOVUDINE
     Indication: PNEUMOCYSTIS JIROVECII PNEUMONIA
  3. NEVIRAPINE. [Concomitant]
     Active Substance: NEVIRAPINE
     Indication: PNEUMOCYSTIS JIROVECII PNEUMONIA
  4. EPIVIR [Concomitant]
     Active Substance: LAMIVUDINE
     Indication: PNEUMOCYSTIS JIROVECII PNEUMONIA

REACTIONS (5)
  - Spinal operation [Unknown]
  - Hypoxia [Unknown]
  - Pulmonary embolism [Fatal]
  - Respiratory arrest [Fatal]
  - Platelet count decreased [Unknown]

NARRATIVE: CASE EVENT DATE: 20140226
